FAERS Safety Report 6790945-X (Version None)
Quarter: 2010Q2

REPORT INFORMATION
  Report Type: 
  Country: None (occurrence: None)
  Receive Date: 20100624
  Receipt Date: 20100621
  Transmission Date: 20101027
  Serious: Yes (Death)
  Sender: FDA-Public Use
  Company Number: US-SANOFI-AVENTIS-2010SA036174

PATIENT
  Age: 49 Year
  Sex: Male

DRUGS (8)
  1. PLAVIX [Suspect]
     Indication: MYOCARDIAL INFARCTION
     Route: 048
     Dates: start: 20100501, end: 20100616
  2. PLAVIX [Suspect]
     Route: 048
     Dates: start: 20100501, end: 20100616
  3. ASPIRIN [Concomitant]
     Dates: end: 20100616
  4. LISINOPRIL [Concomitant]
     Route: 048
     Dates: end: 20100616
  5. CARVEDILOL [Concomitant]
     Dates: end: 20100616
  6. LIPITOR [Concomitant]
     Route: 048
     Dates: end: 20100616
  7. IMDUR [Concomitant]
     Route: 048
     Dates: end: 20100616
  8. GLYCERYL TRINITRATE [Concomitant]
     Route: 060
     Dates: end: 20100616

REACTIONS (1)
  - DEATH [None]
